FAERS Safety Report 4660406-2 (Version None)
Quarter: 2005Q2

REPORT INFORMATION
  Report Type: 
  Country: None (occurrence: None)
  Receive Date: 20050512
  Receipt Date: 20050505
  Transmission Date: 20051028
  Serious: Yes (Other)
  Sender: FDA-Public Use
  Company Number: 200513930US

PATIENT
  Sex: Female
  Weight: 68 kg

DRUGS (5)
  1. LANTUS [Suspect]
     Indication: DIABETES MELLITUS INSULIN-DEPENDENT
     Dosage: DOSE UNIT: UNITS
     Dates: start: 20050223
  2. HUMULIN L [Concomitant]
     Dosage: DOSE: UNKNOWN
  3. HUMALOG [Concomitant]
     Dosage: DOSE: UNKNOWN
  4. CAPOTEN [Concomitant]
     Dosage: DOSE: UNKNOWN
  5. PROMETRIUM [Concomitant]
     Dosage: DOSE: UNKNOWN

REACTIONS (9)
  - ALANINE AMINOTRANSFERASE INCREASED [None]
  - ASPARTATE AMINOTRANSFERASE INCREASED [None]
  - BLOOD ALKALINE PHOSPHATASE INCREASED [None]
  - BLOOD GLUCOSE DECREASED [None]
  - HEADACHE [None]
  - HEPATIC ENZYME INCREASED [None]
  - HYPERGLYCAEMIA [None]
  - NECK PAIN [None]
  - VOMITING [None]
